FAERS Safety Report 25013489 (Version 2)
Quarter: 2025Q2

REPORT INFORMATION
  Report Type: Spontaneous
  Country: US (occurrence: US)
  Receive Date: 20250226
  Receipt Date: 20250630
  Transmission Date: 20250717
  Serious: No
  Sender: UCB
  Company Number: US-UCBSA-2024047426

PATIENT
  Age: 27 Year
  Sex: Male

DRUGS (21)
  1. LACOSAMIDE [Suspect]
     Active Substance: LACOSAMIDE
     Indication: Temporal lobe epilepsy
     Dosage: 200 MILLIGRAM, 2X/DAY (BID)
  2. LACOSAMIDE [Suspect]
     Active Substance: LACOSAMIDE
  3. LACOSAMIDE [Suspect]
     Active Substance: LACOSAMIDE
     Route: 042
  4. LACOSAMIDE [Suspect]
     Active Substance: LACOSAMIDE
     Dosage: 100 MILLIGRAM, 2X/DAY (BID)
  5. LEVETIRACETAM [Suspect]
     Active Substance: LEVETIRACETAM
     Indication: Temporal lobe epilepsy
     Dosage: LEVETIRACETAM EXTENDED-RELEASE AT1500 MILLIGRAM, 3X/DAY (TID)
  6. LEVETIRACETAM [Suspect]
     Active Substance: LEVETIRACETAM
     Dosage: 1500 MILLIGRAM, 3X/DAY (TID)
  7. LEVETIRACETAM [Suspect]
     Active Substance: LEVETIRACETAM
     Dosage: LEVETIRACETAM EXTENDED-RELEASE AT1500 MILLIGRAM, 3X/DAY (TID)
  8. MIDAZOLAM [Suspect]
     Active Substance: MIDAZOLAM
     Indication: Seizure
  9. MIDAZOLAM [Suspect]
     Active Substance: MIDAZOLAM
     Indication: Toxic encephalopathy
  10. MIDAZOLAM [Suspect]
     Active Substance: MIDAZOLAM
     Indication: Off label use
  11. TIAGABINE [Suspect]
     Active Substance: TIAGABINE
     Indication: Temporal lobe epilepsy
     Dosage: 12 MILLIGRAM, 3X/DAY (TID) (ORIGINALLY STARTED AT AGE 21)
  12. TIAGABINE [Suspect]
     Active Substance: TIAGABINE
     Dosage: 16 MILLIGRAM, 3X/DAY (TID)
  13. TIAGABINE [Suspect]
     Active Substance: TIAGABINE
  14. ESLICARBAZEPINE [Suspect]
     Active Substance: ESLICARBAZEPINE
     Indication: Temporal lobe epilepsy
  15. LORAZEPAM [Concomitant]
     Active Substance: LORAZEPAM
     Indication: Seizure
     Route: 042
  16. LORAZEPAM [Concomitant]
     Active Substance: LORAZEPAM
     Indication: Toxic encephalopathy
     Route: 042
  17. TOPIRAMATE [Concomitant]
     Active Substance: TOPIRAMATE
     Indication: Temporal lobe epilepsy
     Dosage: 200 MILLIGRAM, 2X/DAY (BID)
  18. TOPIRAMATE [Concomitant]
     Active Substance: TOPIRAMATE
     Dosage: 300 MILLIGRAM, 3X/DAY (TID)
  19. OXCARBAZEPINE [Concomitant]
     Active Substance: OXCARBAZEPINE
     Indication: Temporal lobe epilepsy
     Dosage: 1200 MILLIGRAM, 2X/DAY (BID)
  20. CARBAMAZEPINE [Concomitant]
     Active Substance: CARBAMAZEPINE
     Indication: Temporal lobe epilepsy
  21. CLONAZEPAM [Concomitant]
     Active Substance: CLONAZEPAM
     Indication: Temporal lobe epilepsy
     Dosage: 1 MILLIGRAM, 3X/DAY (TID)

REACTIONS (3)
  - Off label use [Unknown]
  - Prescribed overdose [Unknown]
  - Multiple-drug resistance [Unknown]
